FAERS Safety Report 18944988 (Version 1)
Quarter: 2021Q1

REPORT INFORMATION
  Report Type: Spontaneous
  Country: US (occurrence: US)
  Receive Date: 20210226
  Receipt Date: 20210226
  Transmission Date: 20210420
  Serious: Yes (Life-Threatening, Disabling, Other)
  Sender: FDA-Public Use
  Company Number: None

PATIENT
  Age: 54 Year
  Sex: Female
  Weight: 54 kg

DRUGS (8)
  1. HYDROCORTISONE. [Concomitant]
     Active Substance: HYDROCORTISONE
  2. BUPROPION XL [Concomitant]
     Active Substance: BUPROPION
  3. TRULANCE [Concomitant]
     Active Substance: PLECANATIDE
  4. KETAMINE W/LIDOCAINE [Concomitant]
  5. VITAMINE C [Concomitant]
     Active Substance: ASCORBIC ACID
  6. GLUCAGON TESTING KIT [Suspect]
     Active Substance: GLUCAGON
     Indication: GLUCAGON TOLERANCE TEST
     Dosage: ?          QUANTITY:1 INJECTION(S);OTHER FREQUENCY:ONE TIME TEST;?
     Route: 030
     Dates: start: 20210224, end: 20210224
  7. BENADRYL [Concomitant]
     Active Substance: DIPHENHYDRAMINE HYDROCHLORIDE
  8. DHEA [Concomitant]
     Active Substance: PRASTERONE

REACTIONS (11)
  - Pain of skin [None]
  - Pancreatitis [None]
  - Hypovolaemia [None]
  - Abdominal pain [None]
  - Hypoglycaemia [None]
  - Neuroglycopenia [None]
  - Headache [None]
  - Procedural complication [None]
  - Nausea [None]
  - Anaphylactic reaction [None]
  - Hypoxia [None]

NARRATIVE: CASE EVENT DATE: 20210224
